FAERS Safety Report 9973689 (Version 1)
Quarter: 2014Q1

REPORT INFORMATION
  Report Type: Spontaneous
  Country: GB (occurrence: GB)
  Receive Date: 20140306
  Receipt Date: 20140306
  Transmission Date: 20141002
  Serious: Yes (Other)
  Sender: FDA-Public Use
  Company Number: GB-PFIZER INC-2014062890

PATIENT
  Sex: 0

DRUGS (1)
  1. CAMPTO [Suspect]

REACTIONS (1)
  - Interstitial lung disease [Unknown]
